FAERS Safety Report 8577693-0 (Version None)
Quarter: 2012Q3

REPORT INFORMATION
  Report Type: 
  Country: None (occurrence: None)
  Receive Date: 20120808
  Receipt Date: 20120730
  Transmission Date: 20120928
  Serious: Yes (Life-Threatening)
  Sender: FDA-Public Use
  Company Number: JP-AMGEN-JPNSP2012048824

PATIENT
  Age: 42 Year
  Sex: Female

DRUGS (6)
  1. FENTANYL-100 [Concomitant]
     Dosage: UNKNOWN
     Route: 065
  2. PACLITAXEL [Concomitant]
     Dosage: UNKNOWN
     Route: 065
  3. PROMAC [Concomitant]
     Dosage: UNKNOWN
     Route: 065
  4. FENTANYL [Concomitant]
     Dosage: UNKNOWN
     Route: 065
  5. RANMARK [Suspect]
     Indication: METASTASES TO BONE
     Dosage: 120 MG, ONE TIME DOSE
     Route: 058
     Dates: start: 20120618, end: 20120618
  6. PARAPLATIN [Concomitant]
     Dosage: UNKNOWN
     Route: 065

REACTIONS (2)
  - HYPOCALCAEMIA [None]
  - TETANY [None]
